FAERS Safety Report 5468206-0 (Version None)
Quarter: 2007Q3

REPORT INFORMATION
  Report Type: 
  Country: None (occurrence: None)
  Receive Date: 20070921
  Receipt Date: 20070907
  Transmission Date: 20080115
  Serious: Yes (Hospitalization)
  Sender: FDA-Public Use
  Company Number: SPV1-2007-04145

PATIENT
  Age: 10 Year
  Sex: Male

DRUGS (1)
  1. PENTASE (MESALAZINE, MESALAMINE) CAPSULE [Suspect]
     Indication: CROHN'S DISEASE
     Dosage: 40 MG/KG/DAY

REACTIONS (8)
  - ABDOMINAL PAIN [None]
  - CHEST PAIN [None]
  - DYSPHAGIA [None]
  - NAUSEA [None]
  - PHARYNGOLARYNGEAL PAIN [None]
  - PYREXIA [None]
  - SYSTEMIC LUPUS ERYTHEMATOSUS RASH [None]
  - VOMITING [None]
